FAERS Safety Report 7701253-4 (Version None)
Quarter: 2011Q4

REPORT INFORMATION
  Report Type: 
  Country: None (occurrence: None)
  Receive Date: 20110822
  Receipt Date: 20110816
  Transmission Date: 20120403
  Serious: Yes (Life-Threatening, Hospitalization, Other)
  Sender: FDA-Public Use
  Company Number: NZ-GLAXOSMITHKLINE-B0686233A

PATIENT
  Sex: Female

DRUGS (3)
  1. CARBAMAZEPINE [Suspect]
     Indication: PRODUCT USED FOR UNKNOWN INDICATION
     Route: 065
  2. LAMIVUDINE (EPIVIR HBV) [Suspect]
     Indication: HEPATITIS C
     Dosage: 100MG PER DAY
     Route: 048
     Dates: end: 20101101
  3. PHENYTOIN [Suspect]
     Indication: EPILEPSY
     Dosage: 300MG PER DAY
     Route: 048
     Dates: start: 20080101, end: 20101101

REACTIONS (4)
  - TOXIC EPIDERMAL NECROLYSIS [None]
  - THERMAL BURN [None]
  - LACTIC ACIDOSIS [None]
  - HEPATITIS C [None]
